FAERS Safety Report 8562182-X (Version None)
Quarter: 2012Q3

REPORT INFORMATION
  Report Type: 
  Country: None (occurrence: None)
  Receive Date: 20120802
  Receipt Date: 20120709
  Transmission Date: 20120928
  Serious: No
  Sender: FDA-Public Use
  Company Number: US-AMGEN-USASP2012042441

PATIENT
  Age: 59 Year
  Sex: Male

DRUGS (2)
  1. ENBREL [Suspect]
     Indication: RHEUMATOID ARTHRITIS
     Dosage: 50 MG, QWK
     Dates: start: 20000702
  2. METHOTREXATE [Concomitant]
     Dosage: 1 ML, UNK
     Dates: start: 20120301

REACTIONS (2)
  - GAIT DISTURBANCE [None]
  - RHEUMATOID ARTHRITIS [None]
